FAERS Safety Report 6662052-8 (Version None)
Quarter: 2010Q1

REPORT INFORMATION
  Report Type: 
  Country: None (occurrence: None)
  Receive Date: 20100331
  Receipt Date: 20100304
  Transmission Date: 20100710
  Serious: No
  Sender: FDA-Public Use
  Company Number: US-JNJFOC-20100302030

PATIENT
  Sex: Female

DRUGS (2)
  1. INVEGA [Suspect]
     Indication: DRUG USE FOR UNKNOWN INDICATION
     Route: 048
  2. UNSPECIFIED ANTI-HYPERTENSIVE [Concomitant]
     Indication: DRUG USE FOR UNKNOWN INDICATION

REACTIONS (1)
  - SWELLING [None]
